FAERS Safety Report 5717827-6 (Version None)
Quarter: 2008Q2

REPORT INFORMATION
  Report Type: 
  Country: None (occurrence: None)
  Receive Date: 20080425
  Receipt Date: 20080414
  Transmission Date: 20081010
  Serious: Yes (Hospitalization)
  Sender: FDA-Public Use
  Company Number: US-JNJFOC-20080404473

PATIENT
  Sex: Male
  Weight: 72.58 kg

DRUGS (2)
  1. TYLENOL W/ CODEINE NO. 3 [Suspect]
     Route: 048
  2. TYLENOL W/ CODEINE NO. 3 [Suspect]
     Indication: PAIN
     Route: 048

REACTIONS (2)
  - HEPATIC CIRRHOSIS [None]
  - TESTIS CANCER [None]
